FAERS Safety Report 7483102-5 (Version None)
Quarter: 2011Q2

REPORT INFORMATION
  Report Type: 
  Country: None (occurrence: None)
  Receive Date: 20110516
  Receipt Date: 20110512
  Transmission Date: 20111010
  Serious: Yes (Hospitalization)
  Sender: FDA-Public Use
  Company Number: US-ABBOTT-11P-163-0725123-00

PATIENT
  Sex: Female
  Weight: 61.29 kg

DRUGS (3)
  1. ENTOCORT EC [Concomitant]
     Indication: CROHN'S DISEASE
  2. HUMIRA [Suspect]
     Indication: CROHN'S DISEASE
     Route: 058
     Dates: start: 20100401
  3. MELPHALAN HYDROCHLORIDE [Concomitant]
     Indication: CROHN'S DISEASE

REACTIONS (2)
  - GASTROINTESTINAL INFLAMMATION [None]
  - CROHN'S DISEASE [None]
